FAERS Safety Report 15749014 (Version 2)
Quarter: 2019Q2

REPORT INFORMATION
  Report Type: Report from Study
  Country: US (occurrence: US)
  Receive Date: 20181221
  Receipt Date: 20190515
  Transmission Date: 20190711
  Serious: Yes (Other)
  Sender: FDA-Public Use
  Company Number: US-ROCHE-2201559

PATIENT
  Sex: Female
  Weight: 56.75 kg

DRUGS (3)
  1. OCREVUS [Suspect]
     Active Substance: OCRELIZUMAB
     Indication: RELAPSING MULTIPLE SCLEROSIS
     Dosage: LAST DOSE DATE: 14/MAY/2018
     Route: 042
  2. OCREVUS [Suspect]
     Active Substance: OCRELIZUMAB
     Dosage: ONGOING: YES
     Route: 042
     Dates: start: 201711
  3. CYMBALTA [Suspect]
     Active Substance: DULOXETINE HYDROCHLORIDE
     Indication: NEUROPATHY PERIPHERAL
     Route: 065

REACTIONS (12)
  - Blood pressure increased [Unknown]
  - Depression [Not Recovered/Not Resolved]
  - Urinary tract infection [Unknown]
  - Fatigue [Unknown]
  - Malaise [Not Recovered/Not Resolved]
  - Myalgia [Unknown]
  - Headache [Unknown]
  - Therapeutic response decreased [Unknown]
  - Neuropathy peripheral [Unknown]
  - Paraesthesia [Unknown]
  - Heart rate increased [Unknown]
  - Pain in extremity [Not Recovered/Not Resolved]
